FAERS Safety Report 9262910 (Version 1)
Quarter: 2013Q2

REPORT INFORMATION
  Report Type: Spontaneous
  Country: US (occurrence: None)
  Receive Date: 20130426
  Receipt Date: 20130426
  Transmission Date: 20140414
  Serious: No
  Sender: FDA-Public Use
  Company Number: None

PATIENT
  Age: 53 Year
  Sex: Female
  Weight: 54.43 kg

DRUGS (1)
  1. METRONIDAZOLE [Suspect]
     Route: 048
     Dates: start: 20130213, end: 20130220

REACTIONS (4)
  - Neuropathy peripheral [None]
  - Nausea [None]
  - Dysgeusia [None]
  - Chromaturia [None]
